FAERS Safety Report 16091180 (Version 2)
Quarter: 2019Q2

REPORT INFORMATION
  Report Type: Report from Study
  Country: US (occurrence: US)
  Receive Date: 20190319
  Receipt Date: 20190402
  Transmission Date: 20190711
  Serious: Yes (Other)
  Sender: FDA-Public Use
  Company Number: PHEH2019US011532

PATIENT
  Sex: Female

DRUGS (1)
  1. TRAVATAN Z [Suspect]
     Active Substance: TRAVOPROST
     Indication: PRODUCT USED FOR UNKNOWN INDICATION
     Route: 065

REACTIONS (7)
  - Glaucoma [Unknown]
  - Clavicle fracture [Unknown]
  - Sjogren^s syndrome [Unknown]
  - Osteoporosis [Unknown]
  - Left ventricular failure [Unknown]
  - Autoimmune disorder [Unknown]
  - Adrenal insufficiency [Unknown]
